FAERS Safety Report 8059639-7 (Version None)
Quarter: 2012Q1

REPORT INFORMATION
  Report Type: 
  Country: None (occurrence: None)
  Receive Date: 20120120
  Receipt Date: 20120113
  Transmission Date: 20120608
  Serious: Yes (Other)
  Sender: FDA-Public Use
  Company Number: PHHY2012CZ003668

PATIENT
  Age: 55 Year
  Sex: Male

DRUGS (5)
  1. HYDROXYUREA [Suspect]
     Indication: CHRONIC MYELOID LEUKAEMIA
  2. DASATINIB [Suspect]
     Indication: CHRONIC MYELOID LEUKAEMIA
  3. NILOTINIB [Suspect]
     Indication: CHRONIC MYELOID LEUKAEMIA
  4. INTERFERON [Suspect]
     Indication: CHRONIC MYELOID LEUKAEMIA
  5. IMATINIB MESYLATE [Suspect]
     Indication: CHRONIC MYELOID LEUKAEMIA

REACTIONS (2)
  - COLON CANCER [None]
  - NEOPLASM MALIGNANT [None]
